FAERS Safety Report 11917521 (Version 2)
Quarter: 2016Q2

REPORT INFORMATION
  Report Type: Not Available
  Country: FR (occurrence: FR)
  Receive Date: 20160114
  Receipt Date: 20160426
  Transmission Date: 20160815
  Serious: Yes (Hospitalization)
  Sender: FDA-Public Use
  Company Number: FR-MUNDIPHARMA DS AND PHARMACOVIGILANCE-GBR-2016-0033394

PATIENT
  Age: 78 Year
  Sex: Female
  Weight: 54 kg

DRUGS (2)
  1. NIVOLUMAB [Concomitant]
     Active Substance: NIVOLUMAB
     Indication: SQUAMOUS CELL CARCINOMA OF LUNG
  2. OXYCONTIN [Suspect]
     Active Substance: OXYCODONE HYDROCHLORIDE
     Indication: LUNG CANCER METASTATIC
     Dosage: 20 MG, BID
     Route: 048
     Dates: start: 20151224, end: 20151226

REACTIONS (5)
  - Respiratory distress [Recovered/Resolved]
  - Chronic obstructive pulmonary disease [Unknown]
  - Bradypnoea [Recovered/Resolved]
  - Overdose [Unknown]
  - Disorientation [Recovered/Resolved]

NARRATIVE: CASE EVENT DATE: 20151225
